FAERS Safety Report 19121120 (Version 2)
Quarter: 2021Q2

REPORT INFORMATION
  Report Type: Not Available
  Country: None (occurrence: None)
  Receive Date: 20210412
  Receipt Date: 20210507
  Transmission Date: 20210717
  Serious: No
  Sender: FDA-Public Use
  Company Number: US-AKORN-163728

PATIENT
  Age: 26 Year
  Sex: Female
  Weight: 82 kg

DRUGS (1)
  1. MYORISAN [Suspect]
     Active Substance: ISOTRETINOIN

REACTIONS (7)
  - Tinnitus [Recovered/Resolved]
  - Arthralgia [None]
  - Headache [Recovered/Resolved]
  - Head discomfort [Recovered/Resolved]
  - Off label use [Recovered/Resolved]
  - Rectal haemorrhage [Recovered/Resolved]
  - Palpitations [Recovered/Resolved]
